FAERS Safety Report 21457416 (Version 1)
Quarter: 2022Q4

REPORT INFORMATION
  Report Type: Spontaneous
  Country: FR (occurrence: FR)
  Receive Date: 20221014
  Receipt Date: 20221014
  Transmission Date: 20230112
  Serious: Yes (Hospitalization)
  Sender: FDA-Public Use
  Company Number: None

PATIENT
  Age: 49 Year
  Sex: Male
  Weight: 80 kg

DRUGS (5)
  1. AMOXICILLIN [Suspect]
     Active Substance: AMOXICILLIN
     Indication: Septic shock
     Dosage: 16 GRAM, QD
     Route: 042
     Dates: start: 20220716, end: 20220721
  2. ACYCLOVIR [Suspect]
     Active Substance: ACYCLOVIR
     Indication: Septic shock
     Dosage: 800MG 3/DAY
     Route: 065
     Dates: start: 20220716, end: 20220721
  3. CEFOTAXIME [Suspect]
     Active Substance: CEFOTAXIME SODIUM
     Indication: Septic shock
     Dosage: 24 GRAM, QD
     Route: 042
     Dates: start: 20220716, end: 20220721
  4. GENTAMICIN [Suspect]
     Active Substance: GENTAMICIN
     Indication: Septic shock
     Dosage: UNK
     Route: 042
     Dates: start: 20220716, end: 20220721
  5. DEXAMETHASONE [Suspect]
     Active Substance: DEXAMETHASONE
     Indication: Antiinflammatory therapy
     Dosage: 10 MILLIGRAM, Q6H
     Route: 042
     Dates: start: 20220716, end: 20220723

REACTIONS (1)
  - Dermatitis bullous [Recovering/Resolving]

NARRATIVE: CASE EVENT DATE: 20220721
